FAERS Safety Report 7999223-4 (Version None)
Quarter: 2011Q4

REPORT INFORMATION
  Report Type: 
  Country: None (occurrence: None)
  Receive Date: 20111221
  Receipt Date: 20111216
  Transmission Date: 20120403
  Serious: Yes (Other)
  Sender: FDA-Public Use
  Company Number: US-PFIZER INC-2011110645

PATIENT
  Sex: Male

DRUGS (4)
  1. NAPROSYN [Concomitant]
     Indication: ANALGESIC THERAPY
     Dosage: UNK
     Dates: start: 20070219, end: 20100312
  2. HYDROCODONE [Concomitant]
     Indication: ANALGESIC THERAPY
     Dosage: UNK
     Dates: start: 20070219, end: 20110608
  3. SOMA [Concomitant]
     Indication: MUSCLE RELAXANT THERAPY
     Dosage: UNK
     Dates: start: 20070219, end: 20110404
  4. CHANTIX [Suspect]
     Indication: SMOKING CESSATION THERAPY
     Dosage: 1 MG, UNK
     Dates: start: 20080724, end: 20090830

REACTIONS (8)
  - SUICIDE ATTEMPT [None]
  - AGGRESSION [None]
  - ANXIETY [None]
  - LOSS OF CONSCIOUSNESS [None]
  - ABNORMAL BEHAVIOUR [None]
  - MENTAL DISORDER [None]
  - DEPRESSION [None]
  - EMOTIONAL DISTRESS [None]
